FAERS Safety Report 5412419-0 (Version None)
Quarter: 2007Q3

REPORT INFORMATION
  Report Type: 
  Country: None (occurrence: None)
  Receive Date: 20070813
  Receipt Date: 20070808
  Transmission Date: 20080115
  Serious: Yes (Hospitalization)
  Sender: FDA-Public Use
  Company Number: US-MERCK-0708USA01503

PATIENT
  Age: 4 Year
  Sex: Male

DRUGS (6)
  1. SINGULAIR [Suspect]
     Indication: ASTHMA
     Route: 048
  2. AUGMENTIN '125' [Concomitant]
     Route: 065
  3. ADVAIR DISKUS 100/50 [Concomitant]
     Route: 065
  4. XOPENEX [Concomitant]
     Route: 065
  5. PULMICORT [Concomitant]
     Route: 065
  6. PROMIFEN (PREDNISONE) [Concomitant]
     Route: 065

REACTIONS (2)
  - ABNORMAL DREAMS [None]
  - RESPIRATORY DISORDER [None]
